FAERS Safety Report 18115503 (Version 1)
Quarter: 2020Q3

REPORT INFORMATION
  Report Type: Other
  Country: PT (occurrence: PT)
  Receive Date: 20200805
  Receipt Date: 20200805
  Transmission Date: 20201103
  Serious: Yes (Other)
  Sender: FDA-Public Use
  Company Number: PT-ROCHE-2652327

PATIENT
  Age: 23 Year
  Sex: Male

DRUGS (5)
  1. SOMATROPIN. [Suspect]
     Active Substance: SOMATROPIN
     Indication: PRADER-WILLI SYNDROME
     Dosage: 0.63 MG/M2/ DAY
     Route: 065
     Dates: start: 2012
  2. VALPROIC ACID. [Concomitant]
     Active Substance: VALPROIC ACID
     Indication: PRADER-WILLI SYNDROME
  3. TESTOSTERONE ENANTHATE. [Concomitant]
     Active Substance: TESTOSTERONE ENANTHATE
     Indication: PRADER-WILLI SYNDROME
     Dosage: STOPPED AT THE AGE OF 20 YEARS
  4. METHYLPHENIDATE. [Concomitant]
     Active Substance: METHYLPHENIDATE
     Indication: PRADER-WILLI SYNDROME
  5. SOMATROPIN. [Suspect]
     Active Substance: SOMATROPIN
     Dosage: RESTARTED. 0.42 MG/M2/ DAY
     Route: 065
     Dates: end: 201607

REACTIONS (5)
  - Obesity [Not Recovered/Not Resolved]
  - Sleep apnoea syndrome [Not Recovered/Not Resolved]
  - Intentional product use issue [Unknown]
  - Off label use [Unknown]
  - Condition aggravated [Not Recovered/Not Resolved]
